FAERS Safety Report 21769729 (Version 2)
Quarter: 2023Q2

REPORT INFORMATION
  Report Type: Spontaneous
  Country: US (occurrence: US)
  Receive Date: 20221223
  Receipt Date: 20230622
  Transmission Date: 20230722
  Serious: Yes (Death, Hospitalization, Other)
  Sender: FDA-Public Use
  Company Number: US-SPECGX-T202202481

PATIENT
  Age: 22 Year
  Sex: Male

DRUGS (1)
  1. OXYCODONE [Suspect]
     Active Substance: OXYCODONE
     Indication: Product used for unknown indication
     Dosage: UNK
     Route: 065

REACTIONS (12)
  - Encephalitis [Fatal]
  - Hydrocephalus [Fatal]
  - Hernia [Fatal]
  - Respiratory failure [Fatal]
  - Coma [Fatal]
  - Overdose [Fatal]
  - Malaise [Unknown]
  - Nausea [Unknown]
  - Vomiting [Unknown]
  - Suicidal ideation [Unknown]
  - Ventricular drainage [Unknown]
  - Suspected counterfeit product [Unknown]
